FAERS Safety Report 4321061-4 (Version None)
Quarter: 2004Q1

REPORT INFORMATION
  Report Type: 
  Country: None (occurrence: None)
  Receive Date: 20040322
  Receipt Date: 20040315
  Transmission Date: 20041129
  Serious: Yes (Death)
  Sender: FDA-Public Use
  Company Number: PHFR2004GB01393

PATIENT
  Age: 28 Year
  Sex: Male
  Weight: 70 kg

DRUGS (7)
  1. CLOZAPINE [Suspect]
     Indication: SCHIZOPHRENIA
     Dosage: 300 MG, QD
     Route: 048
     Dates: start: 20030801
  2. NIFEDIPINE [Concomitant]
     Dosage: 40 MG, BID
     Route: 048
     Dates: start: 20030801
  3. DOXAZOSIN MESYLATE [Concomitant]
     Dosage: 4 MG, BID
     Route: 048
     Dates: start: 20030801
  4. BENDROFLUAZIDE [Concomitant]
     Dosage: 2.5 MG, QD
     Route: 048
     Dates: start: 20030801
  5. CANDESARTAN [Concomitant]
     Dosage: 10 MG, QD
     Route: 048
     Dates: start: 20030801
  6. BECLOMETHASONE DIPROPIONATE [Concomitant]
     Dosage: 2 UNK, QD
     Route: 065
  7. AMISULPRIDE [Concomitant]
     Dosage: 250 MG, BID
     Route: 048

REACTIONS (3)
  - FAECALOMA [None]
  - LARGE INTESTINAL OBSTRUCTION [None]
  - LARGE INTESTINE PERFORATION [None]
